FAERS Safety Report 9379578 (Version 2)
Quarter: 2013Q3

REPORT INFORMATION
  Report Type: Spontaneous
  Country: JP (occurrence: JP)
  Receive Date: 20130702
  Receipt Date: 20130716
  Transmission Date: 20140515
  Serious: No
  Sender: FDA-Public Use
  Company Number: JP-SANOFI-AVENTIS-2013SA064223

PATIENT
  Age: 75 Year
  Sex: Male

DRUGS (6)
  1. PLAVIX [Suspect]
     Indication: CARDIAC DISORDER
     Route: 048
     Dates: start: 20130624, end: 20130624
  2. PLAVIX [Suspect]
     Indication: CARDIAC DISORDER
     Route: 048
     Dates: start: 20130625
  3. LIVALO [Concomitant]
  4. LIVALO [Concomitant]
  5. LANSOPRAZOLE [Concomitant]
     Dates: start: 20130624
  6. ALLOPURINOL [Concomitant]
     Dates: start: 20130624

REACTIONS (1)
  - Blood creatine phosphokinase increased [Recovered/Resolved]
